FAERS Safety Report 10021149 (Version 1)
Quarter: 2014Q1

REPORT INFORMATION
  Report Type: Spontaneous
  Country: US (occurrence: US)
  Receive Date: 20140319
  Receipt Date: 20140319
  Transmission Date: 20141002
  Serious: No
  Sender: FDA-Public Use
  Company Number: US-PFIZER INC-2014078283

PATIENT
  Age: 67 Year
  Sex: Male

DRUGS (1)
  1. XELJANZ [Suspect]
     Indication: RHEUMATOID ARTHRITIS
     Dosage: 5 MG 1 TABLET, 2X/DAY
     Route: 048
     Dates: start: 201309

REACTIONS (2)
  - Diarrhoea [Unknown]
  - Abdominal pain [Recovered/Resolved]
